FAERS Safety Report 9384175 (Version 10)
Quarter: 2014Q2

REPORT INFORMATION
  Report Type: Report from Study
  Country: IT (occurrence: IT)
  Receive Date: 20130705
  Receipt Date: 20140402
  Transmission Date: 20141212
  Serious: Yes (Other)
  Sender: FDA-Public Use
  Company Number: IT-ROCHE-1222287

PATIENT
  Age: 74 Year
  Sex: Male
  Weight: 67 kg

DRUGS (20)
  1. RITUXIMAB [Suspect]
     Indication: NON-HODGKIN^S LYMPHOMA UNSPECIFIED HISTOLOGY INDOLENT
     Route: 065
     Dates: start: 200911, end: 201001
  2. RITUXIMAB [Suspect]
     Route: 065
     Dates: start: 201101, end: 20110510
  3. RITUXIMAB [Suspect]
     Route: 042
     Dates: start: 20121127, end: 20121127
  4. RITUXIMAB [Suspect]
     Dosage: SECOND LINE THERAPY
     Route: 042
     Dates: start: 201009
  5. RHUPH20/RITUXIMAB [Suspect]
     Indication: NON-HODGKIN^S LYMPHOMA UNSPECIFIED HISTOLOGY INDOLENT
     Dosage: LAST DOSE PRIOR TO SEA ON: 30/JAN/2013
     Route: 058
     Dates: start: 20130102, end: 20130321
  6. PREDNISONE [Suspect]
     Indication: NON-HODGKIN^S LYMPHOMA UNSPECIFIED HISTOLOGY INDOLENT
     Route: 065
     Dates: start: 201101, end: 20110510
  7. PREDNISONE [Suspect]
     Dosage: MOST RECENT DOSE ON 30/JAN/2013
     Route: 048
     Dates: start: 20130102, end: 20130321
  8. PREDNISONE [Suspect]
     Route: 065
     Dates: start: 200911, end: 201001
  9. CYCLOPHOSPHAMIDE [Suspect]
     Indication: NON-HODGKIN^S LYMPHOMA UNSPECIFIED HISTOLOGY INDOLENT
     Route: 065
     Dates: start: 200911, end: 201001
  10. DOXORUBICIN [Suspect]
     Indication: NON-HODGKIN^S LYMPHOMA UNSPECIFIED HISTOLOGY INDOLENT
     Route: 065
     Dates: start: 200911, end: 201001
  11. VINCRISTINE [Suspect]
     Indication: NON-HODGKIN^S LYMPHOMA UNSPECIFIED HISTOLOGY INDOLENT
     Route: 065
     Dates: start: 200911, end: 201001
  12. GRANISETRON [Concomitant]
     Dosage: RECENT DOSE RECEIVED ON 01/FEB/2013
     Route: 042
     Dates: start: 20121128, end: 20130321
  13. CHLORPHENAMINE [Concomitant]
     Dosage: MOST RECENT DOSE ON 01/FEB/2013
     Route: 042
     Dates: start: 20121127, end: 20130321
  14. HYDROCORTISONE [Concomitant]
     Dosage: MOST RECENT DOSE ON 27/NOV/2012
     Route: 042
     Dates: start: 20121127
  15. LORATADINE [Concomitant]
     Dosage: MOST RECENT DOSE ON 30/JAN/2013
     Route: 048
     Dates: start: 20130102, end: 20130321
  16. PARACETAMOL [Concomitant]
     Route: 065
     Dates: start: 20121127, end: 20130130
  17. LORAZEPAM [Concomitant]
     Indication: ANXIETY
     Route: 065
     Dates: start: 20121210
  18. MIANSERINE [Concomitant]
     Indication: ANXIETY
     Route: 065
     Dates: start: 20121210
  19. MIANSERINE [Concomitant]
     Indication: DEPRESSION
  20. BENDAMUSTINE [Concomitant]
     Dosage: RECENT DOSE ON 01/FEB/2013
     Route: 058
     Dates: start: 20121128, end: 20130321

REACTIONS (1)
  - Lung neoplasm malignant [Not Recovered/Not Resolved]
